FAERS Safety Report 23075810 (Version 1)
Quarter: 2023Q4

REPORT INFORMATION
  Report Type: Spontaneous
  Country: ES (occurrence: ES)
  Receive Date: 20231017
  Receipt Date: 20231017
  Transmission Date: 20240110
  Serious: Yes (Hospitalization, Other)
  Sender: FDA-Public Use
  Company Number: ES-SANDOZ-SDZ2023ES020784

PATIENT
  Age: 16 Year
  Sex: Male

DRUGS (7)
  1. OMEPRAZOLE MAGNESIUM [Interacting]
     Active Substance: OMEPRAZOLE MAGNESIUM
     Indication: Product used for unknown indication
     Dosage: 20 MG, QD
  2. TACROLIMUS [Interacting]
     Active Substance: TACROLIMUS
     Indication: Immunosuppressant drug therapy
     Dosage: 3.5 MG, QD
     Route: 048
  3. TACROLIMUS [Interacting]
     Active Substance: TACROLIMUS
     Dosage: 2 MG, QD
  4. TACROLIMUS [Interacting]
     Active Substance: TACROLIMUS
     Dosage: 1 MG, QD
  5. TACROLIMUS [Interacting]
     Active Substance: TACROLIMUS
     Dosage: 0.5 MG, QD
  6. MYCOPHENOLATE MOFETIL [Concomitant]
     Active Substance: MYCOPHENOLATE MOFETIL
     Indication: Immunosuppressant drug therapy
  7. PREDNISONE [Concomitant]
     Active Substance: PREDNISONE
     Indication: Immunosuppressant drug therapy

REACTIONS (5)
  - Drug level fluctuating [Recovering/Resolving]
  - Chronic kidney disease [Recovering/Resolving]
  - Drug interaction [Recovering/Resolving]
  - Myalgia [Recovering/Resolving]
  - Diarrhoea [Recovering/Resolving]
